FAERS Safety Report 4509230-1 (Version None)
Quarter: 2004Q4

REPORT INFORMATION
  Report Type: 
  Country: None (occurrence: None)
  Receive Date: 20041025
  Receipt Date: 20040706
  Transmission Date: 20050328
  Serious: Yes (Life-Threatening)
  Sender: FDA-Public Use
  Company Number: US-JNJFOC-20040701563

PATIENT
  Age: 64 Year
  Sex: Female

DRUGS (13)
  1. REMICADE [Suspect]
     Indication: RHEUMATOID ARTHRITIS
     Dosage: 3 MG/KG, 1 IN 1 WEEK, INTRAVENOUS
     Route: 042
     Dates: start: 20100501, end: 20020501
  2. ENBREL [Suspect]
     Dosage: 25 MG, 2 IN 1 WEEK
     Dates: start: 20010501, end: 20020501
  3. FUROSEMIDE [Concomitant]
  4. ENALAPRIL (ENALAPRIL) [Concomitant]
  5. AMITRIPTYLINE (AMITRIPTYLINE) [Concomitant]
  6. PAROXETINE HCL [Concomitant]
  7. TEMAZEPAM [Concomitant]
  8. METOFORMIN (METFORMIN) [Concomitant]
  9. DIHYDROCODEINE (DIHYDROCODEINE) [Concomitant]
  10. FOLIC ACID [Concomitant]
  11. OMEPRAZOLE [Concomitant]
  12. METHOTREXATE [Concomitant]
  13. ANAKINRA (ANAKINRA) [Suspect]
     Dosage: 100 MG
     Dates: start: 20010501, end: 20010501

REACTIONS (1)
  - BASAL CELL CARCINOMA [None]
